FAERS Safety Report 16781125 (Version 2)
Quarter: 2019Q4

REPORT INFORMATION
  Report Type: Spontaneous
  Country: JP (occurrence: JP)
  Receive Date: 20190906
  Receipt Date: 20191018
  Transmission Date: 20200122
  Serious: Yes (Hospitalization)
  Sender: FDA-Public Use
  Company Number: JP-AMGEN-JPNSP2019142288

PATIENT
  Age: 81 Year
  Sex: Female
  Weight: 46 kg

DRUGS (10)
  1. EVENITY [Suspect]
     Active Substance: ROMOSOZUMAB-AQQG
     Indication: SPINAL FRACTURE
     Dosage: 210 MILLIGRAM
     Route: 058
     Dates: start: 20190830
  2. FAMOTIDINE. [Concomitant]
     Active Substance: FAMOTIDINE
     Dosage: 20 MILLIGRAM, QD
  3. MAGMITT [Concomitant]
     Active Substance: MAGNESIUM OXIDE
     Dosage: 1980 MILLIGRAM, QD, 660 MILLIGRAM TID
  4. CALCIUM LACTATE [Concomitant]
     Active Substance: CALCIUM LACTATE
     Indication: HYPOCALCAEMIA
     Dosage: 3 GRAM, QD, 1 GRAM TID
  5. CALONAL [Concomitant]
     Active Substance: ACETAMINOPHEN
     Dosage: 800 MILLIGRAM, QD, 400 MILLIGRAM BID
  6. URSO [Concomitant]
     Active Substance: URSODIOL
     Indication: AUTOIMMUNE HEPATITIS
     Dosage: 100 MILLIGRAM, QD
  7. EVENITY [Suspect]
     Active Substance: ROMOSOZUMAB-AQQG
     Indication: OSTEOPOROSIS
     Dosage: 210 MILLIGRAM
     Route: 058
     Dates: start: 201904, end: 20190628
  8. PREDONINE [Concomitant]
     Active Substance: PREDNISOLONE
     Dosage: 5 MILLIGRAM, QD
     Dates: start: 20190722
  9. TAKECAB [Concomitant]
     Active Substance: VONOPRAZAN FUMURATE
     Dosage: UNK
     Dates: start: 20190723
  10. BELSOMRA [Concomitant]
     Active Substance: SUVOREXANT
     Dosage: 15 MILLIGRAM, QD

REACTIONS (2)
  - Alanine aminotransferase increased [Recovered/Resolved]
  - Aspartate aminotransferase increased [Recovered/Resolved]

NARRATIVE: CASE EVENT DATE: 20190628
